FAERS Safety Report 14615169 (Version 4)
Quarter: 2018Q2

REPORT INFORMATION
  Report Type: Spontaneous
  Country: US (occurrence: US)
  Receive Date: 20180308
  Receipt Date: 20180409
  Transmission Date: 20180711
  Serious: Yes (Other)
  Sender: FDA-Public Use
  Company Number: US-PFIZER INC-2018090028

PATIENT
  Age: 81 Year
  Sex: Male
  Weight: 79.37 kg

DRUGS (21)
  1. LEVOTHYROXINE. [Concomitant]
     Active Substance: LEVOTHYROXINE
     Dosage: 100 UG, UNK
     Dates: start: 1990
  2. ENTERIC ASPIRIN [Concomitant]
     Active Substance: ASPIRIN
     Dosage: 81 MG, UNK (ONLY ON SATURDAY NIGHTS)
  3. ALPHA LIPOIC ACID [Concomitant]
     Active Substance: .ALPHA.-LIPOIC ACID
     Dosage: 1 DF, DAILY
  4. GABAPENTIN. [Suspect]
     Active Substance: GABAPENTIN
     Indication: PARAESTHESIA
     Dosage: 1 DF, DAILY (FIRST WEEK HE TOOK 1 PILL)
     Dates: start: 201708, end: 201708
  5. GABAPENTIN. [Suspect]
     Active Substance: GABAPENTIN
     Dosage: ONE PILL A DAY
     Dates: start: 2017
  6. VITAMIN D [Concomitant]
     Active Substance: CHOLECALCIFEROL
     Dosage: 5000 IU, UNK
     Dates: end: 201712
  7. LORATADINE. [Concomitant]
     Active Substance: LORATADINE
     Dosage: 10 MG, UNK
  8. FISH OIL [Concomitant]
     Active Substance: FISH OIL
     Dosage: 950 MG, UNK
     Dates: start: 2000
  9. POTASSIUM CHLORIDE. [Concomitant]
     Active Substance: POTASSIUM CHLORIDE
     Dosage: 20 MEQ, UNK
  10. LISINOPRIL. [Concomitant]
     Active Substance: LISINOPRIL
     Dosage: 5 MG, UNK
     Dates: start: 1999, end: 201802
  11. GABAPENTIN. [Suspect]
     Active Substance: GABAPENTIN
     Indication: PAIN IN EXTREMITY
     Dosage: 3 DF, DAILY (THIRD WEEK HE TOOK 3 PILLS)
     Dates: start: 201708, end: 201708
  12. ALLOPURINOL. [Concomitant]
     Active Substance: ALLOPURINOL
     Dosage: 300 MG, UNK
     Dates: start: 1990
  13. GABAPENTIN. [Suspect]
     Active Substance: GABAPENTIN
     Indication: ARTHRALGIA
     Dosage: 2 DF, DAILY (SECOND WEEK HE TOOK 2 PILLS)
     Dates: start: 201708, end: 201708
  14. MAGNESIUM OXIDE. [Concomitant]
     Active Substance: MAGNESIUM OXIDE
     Dosage: 400 MG, UNK
  15. OMEGA 396 [Concomitant]
     Dosage: UNK
  16. WARFARIN [Concomitant]
     Active Substance: WARFARIN
     Dosage: UNK (DOSE VARIES ACCORDING TO HIS BLOOD TEST. TAKES 3MG OR 5MG)
  17. FIBERCON [Concomitant]
     Active Substance: CALCIUM POLYCARBOPHIL
     Dosage: 2 DF, 1X/DAY (2 AT NIGHT)
  18. MELATONIN [Concomitant]
     Active Substance: MELATONIN
     Dosage: 10 MG, UNK
  19. VITAMIN C [Concomitant]
     Active Substance: ASCORBIC ACID
     Dosage: 500 MG, UNK
  20. TRAZODONE [Concomitant]
     Active Substance: TRAZODONE HYDROCHLORIDE
     Dosage: 50 MG, UNK
     Dates: start: 2004
  21. OMEGA 3 [Concomitant]
     Active Substance: OMEGA-3 FATTY ACIDS
     Dosage: 950 MG, 1X/DAY (IN THE MORNING.)

REACTIONS (13)
  - Skin abrasion [Recovered/Resolved]
  - Liver function test increased [Unknown]
  - Product use in unapproved indication [Unknown]
  - Hepatic steatosis [Unknown]
  - Cardiac valve disease [Recovering/Resolving]
  - Cardiac murmur [Unknown]
  - Cardiovascular insufficiency [Unknown]
  - Vocal cord disorder [Unknown]
  - Asthenia [Unknown]
  - Gait inability [Recovering/Resolving]
  - Disturbance in attention [Unknown]
  - Haemorrhage [Unknown]
  - Fall [Unknown]

NARRATIVE: CASE EVENT DATE: 201708
